FAERS Safety Report 8759623 (Version 1)
Quarter: 2012Q4

REPORT INFORMATION
  Report Type: 
  Country: US (occurrence: US)
  Receive Date: 20120829
  Receipt Date: 20120829
  Transmission Date: 20130627
  Serious: No
  Sender: FDA-Public Use
  Company Number: US-GLAXOSMITHKLINE-A0942311A

PATIENT
  Age: 56 Year
  Sex: Female

DRUGS (2)
  1. MALARONE [Suspect]
     Indication: MALARIA PROPHYLAXIS
     Dosage: 1TAB Per day
     Route: 048
     Dates: start: 20110801, end: 20110813
  2. MULTIVITAMIN [Concomitant]

REACTIONS (1)
  - Vertigo [Not Recovered/Not Resolved]
